FAERS Safety Report 6227386-X (Version None)
Quarter: 2009Q2

REPORT INFORMATION
  Report Type: 
  Country: None (occurrence: None)
  Receive Date: 20090610
  Receipt Date: 20090525
  Transmission Date: 20091009
  Serious: Yes (Death)
  Sender: FDA-Public Use
  Company Number: 2009050092

PATIENT
  Age: 71 Year
  Sex: Female

DRUGS (5)
  1. TORSEMIDE [Suspect]
     Indication: OEDEMA PERIPHERAL
     Dosage: 80 MG (80 MG, 1 IN 1 D), ORAL
     Route: 048
     Dates: start: 20090402, end: 20090407
  2. ALDACTONE [Concomitant]
  3. OMEPRAZOL [Concomitant]
  4. PROPRANOLOL [Concomitant]
  5. EMPORTAL (LACTITOL) [Concomitant]

REACTIONS (8)
  - ASCITES [None]
  - CONDITION AGGRAVATED [None]
  - GALLBLADDER DISORDER [None]
  - HEPATIC CIRRHOSIS [None]
  - HEPATOMEGALY [None]
  - HEPATORENAL FAILURE [None]
  - HYPOTENSION [None]
  - PORTAL HYPERTENSION [None]
